FAERS Safety Report 23552602 (Version 1)
Quarter: 2024Q1

REPORT INFORMATION
  Report Type: Spontaneous
  Country: US (occurrence: None)
  Receive Date: 20240221
  Receipt Date: 20240221
  Transmission Date: 20240410
  Serious: Yes (Other)
  Sender: FDA-Public Use
  Company Number: None

PATIENT
  Age: 33 Year
  Sex: Male

DRUGS (17)
  1. AMBRISENTAN [Suspect]
     Active Substance: AMBRISENTAN
     Indication: Pulmonary arterial hypertension
     Dosage: FREQUENCY : DAILY;?
     Route: 048
     Dates: start: 20140826
  2. SILDENAFIL [Concomitant]
  3. DIGOXIN [Concomitant]
  4. ALLOPURINOL [Concomitant]
     Active Substance: ALLOPURINOL
  5. ALBUTEROL HFA [Concomitant]
  6. METOLAZONE [Concomitant]
  7. TORSEMIDE [Concomitant]
  8. POTASSIUM CHLORIDE [Concomitant]
  9. BREYNA HFA [Concomitant]
  10. TRIAMCINOLONE TOP CREAM [Concomitant]
  11. COLCHICINE [Concomitant]
     Active Substance: COLCHICINE
  12. WARFARIN [Concomitant]
  13. GABAPENTIN [Concomitant]
  14. EPLERENONE [Concomitant]
  15. METOPROLOL [Concomitant]
     Active Substance: METOPROLOL
  16. ALVESCO HFA [Concomitant]
  17. OXYGEN INTRANASAL [Concomitant]

REACTIONS (2)
  - Gingival bleeding [None]
  - Post procedural complication [None]

NARRATIVE: CASE EVENT DATE: 20240127
